FAERS Safety Report 24227232 (Version 6)
Quarter: 2025Q3

REPORT INFORMATION
  Report Type: Report from Study
  Country: CN (occurrence: CN)
  Receive Date: 20240820
  Receipt Date: 20250716
  Transmission Date: 20251020
  Serious: Yes (Death, Hospitalization, Other)
  Sender: NOVARTIS
  Company Number: CN-002147023-NVSC2024CN164502

PATIENT
  Age: 61 Year
  Sex: Female
  Weight: 63.5 kg

DRUGS (3)
  1. FEMARA [Suspect]
     Active Substance: LETROZOLE
     Indication: Hormone receptor positive HER2 negative breast cancer
     Dosage: 2.5 MG, QD
     Route: 048
     Dates: start: 20171019, end: 20181126
  2. FEMARA [Suspect]
     Active Substance: LETROZOLE
     Dosage: 2.5 MG, QD
     Route: 048
     Dates: start: 20181126, end: 20240805
  3. VITAMIN D NOS [Concomitant]
     Active Substance: CHOLECALCIFEROL\ERGOCALCIFEROL
     Indication: Product used for unknown indication
     Route: 065
     Dates: start: 20240325

REACTIONS (16)
  - Metastases to heart [Fatal]
  - Pericardial effusion [Fatal]
  - Interstitial lung disease [Fatal]
  - Dyspnoea [Fatal]
  - Productive cough [Fatal]
  - Malignant neoplasm progression [Fatal]
  - Breast cancer [Fatal]
  - Discomfort [Fatal]
  - Cough [Fatal]
  - Chest discomfort [Fatal]
  - Pleural effusion [Fatal]
  - Pleural thickening [Fatal]
  - Illness [Unknown]
  - Atelectasis [Unknown]
  - Platelet count decreased [Unknown]
  - Anaemia [Unknown]

NARRATIVE: CASE EVENT DATE: 20240726
